FAERS Safety Report 15754685 (Version 2)
Quarter: 2018Q4

REPORT INFORMATION
  Report Type: Spontaneous
  Country: JP (occurrence: JP)
  Receive Date: 20181224
  Receipt Date: 20181228
  Transmission Date: 20190205
  Serious: Yes (Death, Other)
  Sender: FDA-Public Use
  Company Number: JP-ROCHE-2232605

PATIENT
  Age: 5 Decade
  Sex: Male

DRUGS (3)
  1. HERCEPTIN [Suspect]
     Active Substance: TRASTUZUMAB
     Indication: GASTROOESOPHAGEAL CANCER
     Dosage: DOSAGE IS UNCERTAIN.
     Route: 041
  2. OXALIPLATIN. [Concomitant]
     Active Substance: OXALIPLATIN
     Indication: GASTROOESOPHAGEAL CANCER
     Route: 041
  3. XELODA [Suspect]
     Active Substance: CAPECITABINE
     Indication: GASTROOESOPHAGEAL CANCER
     Dosage: DOSAGE IS UNCERTAIN.
     Route: 048

REACTIONS (18)
  - Disseminated intravascular coagulation [Fatal]
  - Febrile neutropenia [Recovered/Resolved]
  - Off label use [Unknown]
  - Stomatitis [Unknown]
  - Bone marrow failure [Unknown]
  - Stomatitis [Recovered/Resolved]
  - Disseminated intravascular coagulation [Recovered/Resolved]
  - Malaise [Unknown]
  - Decreased appetite [Unknown]
  - Neutrophil count decreased [Unknown]
  - Multiple organ dysfunction syndrome [Fatal]
  - Neutrophil count decreased [Recovered/Resolved]
  - Diarrhoea [Recovered/Resolved]
  - Decreased appetite [Recovered/Resolved]
  - Diarrhoea [Unknown]
  - Platelet count decreased [Unknown]
  - Sepsis [Fatal]
  - Platelet count decreased [Recovered/Resolved]
